FAERS Safety Report 6186520-0 (Version None)
Quarter: 2009Q2

REPORT INFORMATION
  Report Type: 
  Country: None (occurrence: None)
  Receive Date: 20090508
  Receipt Date: 20090424
  Transmission Date: 20091009
  Serious: Yes (Hospitalization)
  Sender: FDA-Public Use
  Company Number: 2009S1007229

PATIENT
  Age: 88 Year
  Sex: Male
  Weight: 74.8435 kg

DRUGS (4)
  1. PROPOXYPHENE HYDROCHLORIDE AND ACETAMINOPHEN TABLETS, USP (65 MG) [Suspect]
     Indication: BACK PAIN
     Dosage: 65 MG; ORAL, 650 MG, ORAL
     Route: 048
     Dates: start: 20090414, end: 20090415
  2. PROPOXYPHENE HYDROCHLORIDE AND ACETAMINOPHEN TABLETS, USP (65 MG) [Suspect]
     Indication: BACK PAIN
     Dosage: 65 MG; ORAL, 650 MG, ORAL
     Route: 048
     Dates: start: 20090414, end: 20090415
  3. ARICEPT [Concomitant]
  4. CYCLOBENZAPRINE [Concomitant]

REACTIONS (4)
  - ANOREXIA [None]
  - ASTHENIA [None]
  - HALLUCINATION [None]
  - MENTAL IMPAIRMENT [None]
